FAERS Safety Report 20408691 (Version 1)
Quarter: 2022Q1

REPORT INFORMATION
  Report Type: Report from Study
  Country: EG (occurrence: EG)
  Receive Date: 20220201
  Receipt Date: 20220201
  Transmission Date: 20220423
  Serious: Yes (Other)
  Sender: FDA-Public Use
  Company Number: EG-NOVARTISPH-NVSC2022EG020451

PATIENT
  Age: 47 Year
  Sex: Female

DRUGS (8)
  1. KISQALI [Suspect]
     Active Substance: RIBOCICLIB
     Indication: Breast cancer metastatic
     Dosage: 3 DOSAGE FORM, QD
     Route: 048
     Dates: start: 202101, end: 202104
  2. KISQALI [Suspect]
     Active Substance: RIBOCICLIB
     Indication: Ovarian cancer metastatic
  3. KISQALI [Suspect]
     Active Substance: RIBOCICLIB
     Indication: Peritoneal carcinoma metastatic
  4. KISQALI [Suspect]
     Active Substance: RIBOCICLIB
     Indication: Oedema
  5. FEMARA [Suspect]
     Active Substance: LETROZOLE
     Indication: Breast cancer metastatic
     Dosage: 1 DOSAGE FORM, QD
     Route: 048
     Dates: start: 202101, end: 202104
  6. FEMARA [Suspect]
     Active Substance: LETROZOLE
     Indication: Ovarian cancer metastatic
  7. FEMARA [Suspect]
     Active Substance: LETROZOLE
     Indication: Peritoneal carcinoma metastatic
  8. FEMARA [Suspect]
     Active Substance: LETROZOLE
     Indication: Oedema

REACTIONS (2)
  - Pulmonary oedema [Recovering/Resolving]
  - Drug ineffective [Unknown]

NARRATIVE: CASE EVENT DATE: 20210401
